FAERS Safety Report 6817533-0 (Version None)
Quarter: 2010Q2

REPORT INFORMATION
  Report Type: 
  Country: None (occurrence: None)
  Receive Date: 20100630
  Receipt Date: 20100615
  Transmission Date: 20101027
  Serious: Yes (Hospitalization)
  Sender: FDA-Public Use
  Company Number: BVT-000570

PATIENT
  Age: 82 Year
  Sex: Female

DRUGS (8)
  1. ENBREL [Suspect]
     Indication: RHEUMATOID ARTHRITIS
     Dosage: (50 MG 1X/WEEK SUBCUTANEOUS)
     Route: 058
     Dates: start: 20031001, end: 20090501
  2. KINERET [Suspect]
     Indication: RHEUMATOID ARTHRITIS
     Dates: start: 20030801, end: 20031001
  3. ARTOTEC [Concomitant]
  4. TOPALGIC [Concomitant]
  5. PRETERAX [Concomitant]
  6. CORDARONE [Concomitant]
  7. CORTANCYL [Concomitant]
  8. METHOTREXATE [Concomitant]

REACTIONS (1)
  - LIP AND/OR ORAL CAVITY CANCER [None]
